FAERS Safety Report 9914478 (Version 2)
Quarter: 2014Q1

REPORT INFORMATION
  Report Type: Spontaneous
  Country: JP (occurrence: None)
  Receive Date: 20140218
  Receipt Date: 20140319
  Transmission Date: 20141002
  Serious: Yes (Other)
  Sender: FDA-Public Use
  Company Number: ABR_01491_2014

PATIENT
  Age: 66 Year
  Sex: Female
  Weight: 49.2 kg

DRUGS (3)
  1. GLIADEL [Suspect]
     Indication: MALIGNANT GLIOMA
     Dosage: 8 DF INTRACEREBRAL
     Dates: start: 20131009, end: 20131009
  2. ALABEL [Concomitant]
  3. AMINOLEUVULINIC ACID [Concomitant]

REACTIONS (7)
  - Deep vein thrombosis [None]
  - Altered state of consciousness [None]
  - Hemiplegia [None]
  - Condition aggravated [None]
  - Aphasia [None]
  - Neoplasm [None]
  - Brain oedema [None]
